FAERS Safety Report 7061973-4 (Version None)
Quarter: 2010Q4

REPORT INFORMATION
  Report Type: 
  Country: None (occurrence: None)
  Receive Date: 20101026
  Receipt Date: 20101018
  Transmission Date: 20110411
  Serious: Yes (Hospitalization, Other)
  Sender: FDA-Public Use
  Company Number: US-TEVA-252182USA

PATIENT
  Age: 28 Year
  Sex: Female

DRUGS (2)
  1. CITALOPRAM HYDROBROMIDE [Suspect]
     Indication: DEPRESSION
  2. HYOSCINE HBR HYT [Suspect]
     Route: 062

REACTIONS (1)
  - ANTICHOLINERGIC SYNDROME [None]
